FAERS Safety Report 18581281 (Version 1)
Quarter: 2020Q4

REPORT INFORMATION
  Report Type: Spontaneous
  Country: US (occurrence: US)
  Receive Date: 20201204
  Receipt Date: 20201204
  Transmission Date: 20210114
  Serious: No
  Sender: FDA-Public Use
  Company Number: US-HARMONY BIOSCIENCES-2020HMY01302

PATIENT

DRUGS (3)
  1. WAKIX [Suspect]
     Active Substance: PITOLISANT HYDROCHLORIDE
     Indication: NARCOLEPSY
     Dosage: ^HIGHEST DOSE^
  2. WAKIX [Suspect]
     Active Substance: PITOLISANT HYDROCHLORIDE
     Indication: SOMNOLENCE
  3. XYREM [Concomitant]
     Active Substance: SODIUM OXYBATE

REACTIONS (3)
  - Therapeutic response unexpected [Unknown]
  - Drug ineffective [Recovered/Resolved]
  - Insomnia [Unknown]
